FAERS Safety Report 15016797 (Version 1)
Quarter: 2018Q2

REPORT INFORMATION
  Report Type: Spontaneous
  Country: DE (occurrence: DE)
  Receive Date: 20180615
  Receipt Date: 20180615
  Transmission Date: 20180711
  Serious: Yes (Hospitalization)
  Sender: FDA-Public Use
  Company Number: DE-PFIZER INC-2018242130

PATIENT
  Age: 38 Year
  Sex: Male

DRUGS (1)
  1. VENLAFAXINE HCL [Suspect]
     Active Substance: VENLAFAXINE HYDROCHLORIDE
     Dosage: 75 MG, 2X/DAY (1-0-1-0)

REACTIONS (6)
  - Syncope [Unknown]
  - Fall [Unknown]
  - Wound [Unknown]
  - Fatigue [Unknown]
  - Disturbance in attention [Unknown]
  - Depressed mood [Unknown]
